FAERS Safety Report 11998413 (Version 1)
Quarter: 2016Q1

REPORT INFORMATION
  Report Type: Spontaneous
  Country: US (occurrence: None)
  Receive Date: 20160203
  Receipt Date: 20160203
  Transmission Date: 20160526
  Serious: Yes (Disabling)
  Sender: FDA-Public Use
  Company Number: None

PATIENT
  Age: 79 Year
  Sex: Female
  Weight: 63.5 kg

DRUGS (7)
  1. OMEPRAZOLE. [Concomitant]
     Active Substance: OMEPRAZOLE
  2. DILTIAZEM [Concomitant]
     Active Substance: DILTIAZEM
  3. ASPIRIN. [Concomitant]
     Active Substance: ASPIRIN
  4. VITAMIN B12 [Concomitant]
     Active Substance: CYANOCOBALAMIN
  5. GUMMY MULTIVITAMIN [Concomitant]
  6. IRBESARTAN. [Suspect]
     Active Substance: IRBESARTAN
     Indication: HYPERTENSION
     Dosage: 1-AM?1-PM
     Route: 048
     Dates: start: 201505, end: 20160106
  7. ENSURE [Concomitant]
     Active Substance: AMINO ACIDS\DEXTROSE\ELECTROLYTES NOS\SOYBEAN OIL\VITAMINS

REACTIONS (15)
  - Fatigue [None]
  - Sneezing [None]
  - Abdominal pain [None]
  - Eructation [None]
  - Lacrimation increased [None]
  - Muscle twitching [None]
  - Dry skin [None]
  - Decreased appetite [None]
  - Asthenia [None]
  - Muscle spasms [None]
  - Back pain [None]
  - Nausea [None]
  - Pruritus [None]
  - Nervousness [None]
  - Skin exfoliation [None]
